FAERS Safety Report 11739594 (Version 2)
Quarter: 2015Q4

REPORT INFORMATION
  Report Type: Spontaneous
  Country: US (occurrence: US)
  Receive Date: 20151110
  Receipt Date: 20151120
  Transmission Date: 20160304
  Serious: No
  Sender: FDA-Public Use
  Company Number: US-ELI_LILLY_AND_COMPANY-US201110007894

PATIENT
  Age: 69 Year
  Sex: Male

DRUGS (2)
  1. FORTEO [Suspect]
     Active Substance: TERIPARATIDE
     Indication: OSTEOPOROSIS
     Dosage: 20 UG, QD
     Route: 065
     Dates: start: 2011
  2. FORTEO [Suspect]
     Active Substance: TERIPARATIDE
     Dosage: 20 UG, QD
     Dates: end: 20120912

REACTIONS (9)
  - Pain [Unknown]
  - Injection site pain [Unknown]
  - Blood calcium increased [Unknown]
  - Arthralgia [Unknown]
  - Pyrexia [Unknown]
  - Nervousness [Unknown]
  - Pain in extremity [Unknown]
  - Asthenia [Unknown]
  - Injection site swelling [Unknown]

NARRATIVE: CASE EVENT DATE: 201209
